FAERS Safety Report 23843803 (Version 2)
Quarter: 2025Q2

REPORT INFORMATION
  Report Type: Spontaneous
  Country: US (occurrence: US)
  Receive Date: 20240510
  Receipt Date: 20250523
  Transmission Date: 20250716
  Serious: Yes (Other)
  Sender: ELI LILLY AND COMPANY
  Company Number: US-ELI_LILLY_AND_COMPANY-US202404018888

PATIENT
  Age: 57 Year
  Sex: Female

DRUGS (16)
  1. ZEPBOUND [Suspect]
     Active Substance: TIRZEPATIDE
     Indication: Glucose tolerance impaired
     Route: 065
     Dates: start: 202312
  2. ZEPBOUND [Suspect]
     Active Substance: TIRZEPATIDE
     Indication: Glucose tolerance impaired
     Route: 065
     Dates: start: 202312
  3. ZEPBOUND [Suspect]
     Active Substance: TIRZEPATIDE
     Indication: Glucose tolerance impaired
     Route: 065
     Dates: start: 202312
  4. ZEPBOUND [Suspect]
     Active Substance: TIRZEPATIDE
     Indication: Glucose tolerance impaired
     Route: 065
     Dates: start: 202312
  5. ZEPBOUND [Suspect]
     Active Substance: TIRZEPATIDE
     Indication: Blood glucose increased
  6. ZEPBOUND [Suspect]
     Active Substance: TIRZEPATIDE
     Indication: Blood glucose increased
  7. ZEPBOUND [Suspect]
     Active Substance: TIRZEPATIDE
     Indication: Blood glucose increased
  8. ZEPBOUND [Suspect]
     Active Substance: TIRZEPATIDE
     Indication: Blood glucose increased
  9. ZEPBOUND [Suspect]
     Active Substance: TIRZEPATIDE
     Indication: Glucose tolerance impaired
     Route: 065
     Dates: start: 202401
  10. ZEPBOUND [Suspect]
     Active Substance: TIRZEPATIDE
     Indication: Glucose tolerance impaired
     Route: 065
     Dates: start: 202401
  11. ZEPBOUND [Suspect]
     Active Substance: TIRZEPATIDE
     Indication: Glucose tolerance impaired
     Route: 065
     Dates: start: 202401
  12. ZEPBOUND [Suspect]
     Active Substance: TIRZEPATIDE
     Indication: Glucose tolerance impaired
     Route: 065
     Dates: start: 202401
  13. ZEPBOUND [Suspect]
     Active Substance: TIRZEPATIDE
     Indication: Blood glucose increased
  14. ZEPBOUND [Suspect]
     Active Substance: TIRZEPATIDE
     Indication: Blood glucose increased
  15. ZEPBOUND [Suspect]
     Active Substance: TIRZEPATIDE
     Indication: Blood glucose increased
  16. ZEPBOUND [Suspect]
     Active Substance: TIRZEPATIDE
     Indication: Blood glucose increased

REACTIONS (3)
  - Appendicitis [Unknown]
  - Abdominal discomfort [Unknown]
  - Off label use [Unknown]

NARRATIVE: CASE EVENT DATE: 20231201
